FAERS Safety Report 25073248 (Version 2)
Quarter: 2025Q1

REPORT INFORMATION
  Report Type: Report from Study
  Country: US (occurrence: US)
  Receive Date: 20250313
  Receipt Date: 20250331
  Transmission Date: 20250408
  Serious: Yes (Hospitalization, Other)
  Sender: ABBVIE
  Company Number: US-ABBVIE-6168569

PATIENT
  Age: 32 Year
  Sex: Male

DRUGS (1)
  1. HUMIRA [Suspect]
     Active Substance: ADALIMUMAB
     Indication: Colitis ulcerative
     Route: 058
     Dates: start: 202412

REACTIONS (7)
  - Humerus fracture [Recovering/Resolving]
  - Anxiety [Unknown]
  - Rib fracture [Unknown]
  - Thoracic vertebral fracture [Recovering/Resolving]
  - Hernia [Unknown]
  - Spinal column injury [Unknown]
  - Musculoskeletal stiffness [Unknown]

NARRATIVE: CASE EVENT DATE: 20241201
